FAERS Safety Report 7247260-X (Version None)
Quarter: 2011Q1

REPORT INFORMATION
  Report Type: 
  Country: None (occurrence: None)
  Receive Date: 20110127
  Receipt Date: 20110121
  Transmission Date: 20110831
  Serious: Yes (Hospitalization)
  Sender: FDA-Public Use
  Company Number: A0794892A

PATIENT
  Age: 76 Year
  Sex: Female

DRUGS (3)
  1. AVANDIA [Suspect]
     Dosage: 8MG TWICE PER DAY
     Route: 048
     Dates: start: 20060701, end: 20070601
  2. AVANDARYL [Suspect]
     Route: 048
     Dates: start: 20060701, end: 20060801
  3. AVANDAMET [Suspect]
     Route: 048
     Dates: start: 20051101, end: 20060501

REACTIONS (2)
  - MYOCARDIAL INFARCTION [None]
  - CEREBROVASCULAR ACCIDENT [None]
